FAERS Safety Report 6683507-6 (Version None)
Quarter: 2010Q2

REPORT INFORMATION
  Report Type: 
  Country: None (occurrence: None)
  Receive Date: 20100415
  Receipt Date: 20100302
  Transmission Date: 20101027
  Serious: Yes (Death, Other)
  Sender: FDA-Public Use
  Company Number: US-BAXTER-2009BH017323

PATIENT
  Age: 67 Year
  Sex: Male
  Weight: 94 kg

DRUGS (12)
  1. HEPARIN SODIUM INJECTION [Suspect]
     Indication: CELLULITIS
     Route: 041
     Dates: start: 20071022, end: 20071025
  2. HEPARIN SODIUM INJECTION [Suspect]
     Route: 041
     Dates: start: 20071028, end: 20071029
  3. HEPARIN SODIUM INJECTION [Suspect]
     Route: 041
     Dates: start: 20071031, end: 20070101
  4. HEPARIN SODIUM INJECTION [Suspect]
     Route: 042
     Dates: start: 20071021, end: 20071021
  5. SODIUM CHLORIDE [Concomitant]
     Indication: DRUG USE FOR UNKNOWN INDICATION
     Route: 042
  6. CEFAZOLIN [Concomitant]
     Indication: DRUG USE FOR UNKNOWN INDICATION
     Route: 065
  7. LIPITOR [Concomitant]
     Indication: DRUG USE FOR UNKNOWN INDICATION
     Route: 065
  8. COREG [Concomitant]
     Indication: DRUG USE FOR UNKNOWN INDICATION
     Route: 065
  9. ASPIRIN [Concomitant]
     Indication: DRUG USE FOR UNKNOWN INDICATION
     Route: 065
  10. RENAGEL [Concomitant]
     Indication: DRUG USE FOR UNKNOWN INDICATION
     Route: 065
  11. PLAVIX [Concomitant]
     Indication: DRUG USE FOR UNKNOWN INDICATION
     Route: 065
  12. NOVOLOG [Concomitant]
     Indication: DRUG USE FOR UNKNOWN INDICATION
     Route: 065

REACTIONS (7)
  - CONFUSIONAL STATE [None]
  - CORONARY ARTERY DISEASE [None]
  - HAEMORRHAGE [None]
  - HYPERKALAEMIA [None]
  - HYPOTENSION [None]
  - RENAL FAILURE CHRONIC [None]
  - VENTRICULAR FIBRILLATION [None]
